FAERS Safety Report 9415033 (Version 1)
Quarter: 2013Q3

REPORT INFORMATION
  Report Type: Report from Study
  Country: CA (occurrence: CA)
  Receive Date: 20130723
  Receipt Date: 20130723
  Transmission Date: 20140515
  Serious: Yes (Other)
  Sender: FDA-Public Use
  Company Number: CA-JNJFOC-20130711091

PATIENT
  Sex: Male
  Weight: 84 kg

DRUGS (2)
  1. REMICADE [Suspect]
     Indication: PSORIASIS
     Dosage: 40 INFUSION
     Route: 042
     Dates: start: 2013
  2. REMICADE [Suspect]
     Indication: PSORIASIS
     Route: 042
     Dates: start: 200808

REACTIONS (3)
  - Spinal column injury [Unknown]
  - Intervertebral disc disorder [Unknown]
  - Weight increased [Unknown]
